FAERS Safety Report 24149381 (Version 1)
Quarter: 2024Q3

REPORT INFORMATION
  Report Type: Report from Study
  Country: US (occurrence: US)
  Receive Date: 20240730
  Receipt Date: 20240730
  Transmission Date: 20241016
  Serious: Yes (Other)
  Sender: ABBVIE
  Company Number: US-ABBVIE-5855997

PATIENT
  Sex: Male

DRUGS (8)
  1. VENETOCLAX [Suspect]
     Active Substance: VENETOCLAX
     Indication: Product used for unknown indication
     Dosage: 100 MG TAB, TAKE 4 TABLETS BY MOUTH DAILY WITH BREAKFAST . TAKE WITH FOOD
     Route: 048
     Dates: start: 20240626
  2. VENETOCLAX [Suspect]
     Active Substance: VENETOCLAX
     Indication: Product used for unknown indication
     Dosage: TAKE 4 TABLETS BY MOUTH? DAILY WITH BREAKFAST .? TAKE WITH FOOD : ORAL .? DISCONTINUED
     Route: 048
     Dates: start: 20240408, end: 20240626
  3. GAZYVA [Suspect]
     Active Substance: OBINUTUZUMAB
     Indication: Product used for unknown indication
     Route: 065
  4. CHOLECALCIFEROL [Concomitant]
     Active Substance: CHOLECALCIFEROL
     Indication: Product used for unknown indication
     Dosage: 50 MCG (2000 UNIT) CAPSULE : TAKE 1 CAP (2000 UNITS) BY MOUTH
     Route: 048
     Dates: start: 20220927
  5. ERYTHROMYCIN [Concomitant]
     Active Substance: ERYTHROMYCIN
     Indication: Product used for unknown indication
     Dosage: 0.5% OPHTHALMIC OINTMENT 3.5 G : APPLY TO EACH EYE 4 TIMES A DAY FOR 7 DAYS
     Route: 047
     Dates: start: 20240701
  6. ERYTHROMYCIN [Concomitant]
     Active Substance: ERYTHROMYCIN
     Indication: Product used for unknown indication
     Dosage: APPLY TO EACH EYE 4 TIMES A DAY FOR 7 DAYS. REASON FOR DISCONTINUE, DOSE: ADJUSTMENT 3.5 G
     Route: 047
     Dates: start: 20240626, end: 20240701
  7. LEVOFLOXACIN [Concomitant]
     Active Substance: LEVOFLOXACIN
     Indication: Product used for unknown indication
     Dosage: 750 MG TABLET (DISCONTINUED ), TAKE 1 TAB BY MOUTH EVERY 24 HOURS. TAKE UNTIL INSTRUCTED BY YOUR ...
     Route: 048
     Dates: start: 20240424, end: 20240426
  8. TESTOSTERONE [Concomitant]
     Active Substance: TESTOSTERONE
     Indication: Product used for unknown indication
     Dosage: 25 MG/ 2.5 GM (1%) GEL, APPLY 2 PACKETS ONTO THE SKIN EVERY MORNING . APPLY TO UPPER ARMS AND SHO...
     Route: 062
     Dates: start: 20240417

REACTIONS (6)
  - Angioedema [Unknown]
  - Testicular failure [Unknown]
  - Cryptorchism [Unknown]
  - Ocular hyperaemia [Unknown]
  - Chills [Unknown]
  - Dyspnoea [Unknown]

NARRATIVE: CASE EVENT DATE: 20240101
